FAERS Safety Report 9754174 (Version 1)
Quarter: 2013Q4

REPORT INFORMATION
  Report Type: Spontaneous
  Country: US (occurrence: US)
  Receive Date: 20131213
  Receipt Date: 20131213
  Transmission Date: 20140711
  Serious: No
  Sender: FDA-Public Use
  Company Number: US-GLAXOSMITHKLINE-A1029391A

PATIENT
  Age: 54 Year
  Sex: Female

DRUGS (2)
  1. NICORETTE NICOTINE POLACRILEX CHERRY LOZENGE, 2MG [Suspect]
     Indication: EX-TOBACCO USER
     Dates: start: 20130608, end: 20130610
  2. NICORETTE NICOTINE POLACRILEX LOZENGE, 2MG [Suspect]
     Indication: EX-TOBACCO USER

REACTIONS (5)
  - Oral herpes [Not Recovered/Not Resolved]
  - Oral disorder [Not Recovered/Not Resolved]
  - Hypersensitivity [Not Recovered/Not Resolved]
  - Scar [Not Recovered/Not Resolved]
  - Rash [Not Recovered/Not Resolved]
